FAERS Safety Report 14564601 (Version 2)
Quarter: 2018Q1

REPORT INFORMATION
  Report Type: Spontaneous
  Country: US (occurrence: US)
  Receive Date: 20180222
  Receipt Date: 20180308
  Transmission Date: 20180509
  Serious: Yes (Other)
  Sender: FDA-Public Use
  Company Number: US-BIOGEN-2016BI00178430

PATIENT
  Age: 61 Year
  Sex: Female

DRUGS (4)
  1. TECFIDERA [Suspect]
     Active Substance: DIMETHYL FUMARATE
     Route: 048
     Dates: start: 2013, end: 2013
  2. TECFIDERA [Suspect]
     Active Substance: DIMETHYL FUMARATE
     Route: 048
     Dates: start: 20131202, end: 20151002
  3. TECFIDERA [Suspect]
     Active Substance: DIMETHYL FUMARATE
     Indication: MULTIPLE SCLEROSIS
     Route: 065
     Dates: start: 201309
  4. TECFIDERA [Suspect]
     Active Substance: DIMETHYL FUMARATE
     Route: 048
     Dates: end: 20151015

REACTIONS (6)
  - Muscular weakness [Not Recovered/Not Resolved]
  - Lymphopenia [Unknown]
  - Hot flush [Recovered/Resolved]
  - White blood cell count decreased [Recovered/Resolved]
  - Type 2 diabetes mellitus [Unknown]
  - Glycosylated haemoglobin decreased [Unknown]

NARRATIVE: CASE EVENT DATE: 2013
